FAERS Safety Report 16248309 (Version 1)
Quarter: 2019Q2

REPORT INFORMATION
  Report Type: Spontaneous
  Country: US (occurrence: US)
  Receive Date: 20190429
  Receipt Date: 20190429
  Transmission Date: 20190711
  Serious: No
  Sender: FDA-Public Use
  Company Number: US-TEVA-2019-US-1042402

PATIENT
  Age: 86 Year
  Sex: Female

DRUGS (2)
  1. METHOTREXATE. [Suspect]
     Active Substance: METHOTREXATE
     Indication: RHEUMATOID ARTHRITIS
     Dosage: 5 MG ONCE PER WEEK ON SATURDAYS AND SUNDAY?DOSE STRENGTH:  2.5 MG
     Dates: start: 201808
  2. METHOTREXATE. [Suspect]
     Active Substance: METHOTREXATE
     Dates: start: 201901

REACTIONS (4)
  - Malaise [Unknown]
  - Weight decreased [Unknown]
  - Urine output increased [Unknown]
  - Pollakiuria [Unknown]

NARRATIVE: CASE EVENT DATE: 201901
